FAERS Safety Report 18722701 (Version 2)
Quarter: 2021Q1

REPORT INFORMATION
  Report Type: Spontaneous
  Country: CH (occurrence: CH)
  Receive Date: 20210111
  Receipt Date: 20210212
  Transmission Date: 20210419
  Serious: Yes (Death)
  Sender: FDA-Public Use
  Company Number: CH-REGENERON PHARMACEUTICALS, INC.-2021-11608

PATIENT

DRUGS (1)
  1. EYLEA [Suspect]
     Active Substance: AFLIBERCEPT
     Indication: NEOVASCULAR AGE-RELATED MACULAR DEGENERATION
     Dosage: DOSE, FREQUENCY, AFFECTED EYE OR TOTAL NUMBER OF INJECTIONS WAS NOT REPORTED
     Dates: start: 20180426, end: 20180806

REACTIONS (1)
  - Death [Fatal]

NARRATIVE: CASE EVENT DATE: 20200829
